FAERS Safety Report 24955607 (Version 3)
Quarter: 2025Q2

REPORT INFORMATION
  Report Type: Spontaneous
  Country: CA (occurrence: CA)
  Receive Date: 20250211
  Receipt Date: 20250424
  Transmission Date: 20250716
  Serious: Yes (Other)
  Sender: PFIZER
  Company Number: CA-PFIZER INC-PV202500013516

PATIENT
  Sex: Female

DRUGS (1)
  1. ESTRING [Suspect]
     Active Substance: ESTRADIOL

REACTIONS (12)
  - Vulvovaginal burning sensation [Unknown]
  - Vaginal discharge [Unknown]
  - Abdominal pain [Unknown]
  - Abdominal pain [Unknown]
  - Breast tenderness [Unknown]
  - Vaginal haemorrhage [Unknown]
  - Vulvovaginal dryness [Unknown]
  - Vaginal odour [Unknown]
  - Headache [Unknown]
  - Nausea [Unknown]
  - Dizziness [Unknown]
  - Vulvovaginal discomfort [Unknown]
